FAERS Safety Report 7556200-5 (Version None)
Quarter: 2011Q2

REPORT INFORMATION
  Report Type: 
  Country: None (occurrence: None)
  Receive Date: 20110620
  Receipt Date: 20090925
  Transmission Date: 20111010
  Serious: No
  Sender: FDA-Public Use
  Company Number: 2009BI031400

PATIENT
  Age: 47 Year
  Sex: Female

DRUGS (3)
  1. TYSABRI [Suspect]
     Indication: MULTIPLE SCLEROSIS
     Route: 042
     Dates: start: 20090824
  2. BENADRYL [Concomitant]
     Indication: PREMEDICATION
     Route: 048
     Dates: start: 20090824
  3. MEDICATIONS (NOS) [Concomitant]
     Indication: PREMEDICATION

REACTIONS (4)
  - HYPERSENSITIVITY [None]
  - NASOPHARYNGITIS [None]
  - VISUAL IMPAIRMENT [None]
  - FATIGUE [None]
